FAERS Safety Report 4562621-5 (Version None)
Quarter: 2005Q1

REPORT INFORMATION
  Report Type: 
  Country: None (occurrence: None)
  Receive Date: 20050127
  Receipt Date: 20050121
  Transmission Date: 20050727
  Serious: Yes (Other)
  Sender: FDA-Public Use
  Company Number: PHBS2005JP01361

PATIENT
  Age: 76 Year
  Sex: Male

DRUGS (2)
  1. CALBLOCK [Concomitant]
     Route: 048
     Dates: start: 20050117
  2. DIOVAN [Suspect]
     Dosage: 80 MG/DAY
     Route: 048
     Dates: start: 20050117

REACTIONS (4)
  - CEREBROVASCULAR STENOSIS [None]
  - DYSLALIA [None]
  - FACIAL PALSY [None]
  - SALIVARY HYPERSECRETION [None]
